FAERS Safety Report 4703154-2 (Version None)
Quarter: 2005Q2

REPORT INFORMATION
  Report Type: 
  Country: None (occurrence: None)
  Receive Date: 20050629
  Receipt Date: 20050609
  Transmission Date: 20051028
  Serious: Yes (Hospitalization)
  Sender: FDA-Public Use
  Company Number: FR-BRISTOL-MYERS SQUIBB COMPANY-13017439

PATIENT
  Age: 73 Year
  Sex: Male

DRUGS (11)
  1. VASTEN TABS [Suspect]
     Route: 048
     Dates: end: 20050508
  2. PLAVIX [Suspect]
     Route: 048
     Dates: end: 20050508
  3. CORVASAL [Suspect]
     Route: 048
     Dates: end: 20050508
  4. CORBIONAX [Suspect]
     Route: 048
     Dates: end: 20050508
  5. AMLODIPINE BESYLATE [Suspect]
     Route: 048
     Dates: end: 20050508
  6. IMMUCYST [Suspect]
     Route: 043
     Dates: start: 20050307, end: 20050418
  7. OGAST [Suspect]
     Route: 048
     Dates: end: 20050508
  8. COMBIVENT [Suspect]
     Dosage: DOSAGE FORM = SUSPENSION NOS
     Route: 055
     Dates: end: 20050508
  9. SERETIDE [Suspect]
     Dosage: DOSAGE FROM = POWDER FOR INHALATION
     Route: 055
     Dates: end: 20050508
  10. ZOLPIDEM [Suspect]
     Route: 048
     Dates: end: 20050508
  11. ALPRAZOLAM [Suspect]
     Dates: end: 20050508

REACTIONS (5)
  - BLADDER NEOPLASM [None]
  - HYDRONEPHROSIS [None]
  - HYPOALBUMINAEMIA [None]
  - INTERSTITIAL LUNG DISEASE [None]
  - URETERIC STENOSIS [None]
